FAERS Safety Report 7311357-6 (Version None)
Quarter: 2011Q1

REPORT INFORMATION
  Report Type: 
  Country: None (occurrence: None)
  Receive Date: 20110224
  Receipt Date: 20110219
  Transmission Date: 20110831
  Serious: Yes (Life-Threatening, Hospitalization)
  Sender: FDA-Public Use
  Company Number: US-US-EMD SERONO, INC.-7042962

PATIENT
  Sex: Male

DRUGS (13)
  1. REBIF [Suspect]
     Indication: MULTIPLE SCLEROSIS
     Route: 058
     Dates: start: 20041201, end: 20061117
  2. REBIF [Suspect]
     Route: 058
     Dates: start: 20061117
  3. SOLU-MEDROL [Concomitant]
     Indication: MULTIPLE SCLEROSIS
     Dates: start: 20060101, end: 20070701
  4. SOLU-MEDROL [Concomitant]
     Dates: start: 20041201, end: 20041205
  5. PROVIGIL [Concomitant]
     Indication: FATIGUE
     Dates: start: 20061219, end: 20080101
  6. SOLU-MEDROL [Concomitant]
     Dates: start: 20070601, end: 20070605
  7. SOLU-MEDROL [Concomitant]
     Dates: start: 20050301, end: 20050305
  8. SOLU-MEDROL [Concomitant]
     Dates: start: 20040901, end: 20040905
  9. IMMUNE GLOBULIN INTRAVENOUS (HUMAN) [Concomitant]
     Indication: MULTIPLE SCLEROSIS
     Dates: start: 20070401, end: 20070501
  10. CYTOXAN [Concomitant]
     Indication: MULTIPLE SCLEROSIS
     Dates: start: 20060101, end: 20070701
  11. PROZAC [Concomitant]
     Indication: PSYCHIATRIC SYMPTOM
     Dates: start: 20061219
  12. NOVANTRONE [Concomitant]
     Indication: MULTIPLE SCLEROSIS
     Dates: start: 20050101, end: 20050601
  13. ZOFRAN [Concomitant]
     Indication: PROPHYLAXIS
     Dates: start: 20061201, end: 20070101

REACTIONS (1)
  - THROMBOCYTOPENIA [None]
